FAERS Safety Report 10930032 (Version 1)
Quarter: 2015Q1

REPORT INFORMATION
  Report Type: Spontaneous
  Country: US (occurrence: None)
  Receive Date: 20150318
  Receipt Date: 20150318
  Transmission Date: 20150721
  Serious: No
  Sender: FDA-Public Use
  Company Number: None

PATIENT
  Age: 25 Year
  Sex: Female
  Weight: 63.5 kg

DRUGS (5)
  1. PRENATAL [Concomitant]
     Active Substance: VITAMINS
  2. DORYX [Suspect]
     Active Substance: DOXYCYCLINE HYCLATE
     Indication: ACNE
     Dosage: TAKEN BY MOUTH
  3. BIOTIN [Concomitant]
     Active Substance: BIOTIN
  4. ZYRTEC [Concomitant]
     Active Substance: CETIRIZINE HYDROCHLORIDE
  5. VITAMIN [Concomitant]
     Active Substance: VITAMINS

REACTIONS (1)
  - Libido increased [None]

NARRATIVE: CASE EVENT DATE: 20150301
